FAERS Safety Report 7951448-X (Version None)
Quarter: 2011Q4

REPORT INFORMATION
  Report Type: 
  Country: None (occurrence: None)
  Receive Date: 20111201
  Receipt Date: 20111123
  Transmission Date: 20120403
  Serious: Yes (Hospitalization)
  Sender: FDA-Public Use
  Company Number: FR-JNJFOC-20111111718

PATIENT
  Age: 60 Year
  Sex: Female

DRUGS (1)
  1. TOPIRAMATE [Suspect]
     Indication: EPILEPSY
     Route: 048
     Dates: start: 20110405, end: 20110810

REACTIONS (8)
  - ELEVATED MOOD [None]
  - IMPAIRED DRIVING ABILITY [None]
  - COMPULSIVE SHOPPING [None]
  - DEREALISATION [None]
  - VISUAL ACUITY REDUCED [None]
  - INCOHERENT [None]
  - IRRITABILITY [None]
  - WEIGHT DECREASED [None]
